FAERS Safety Report 11868944 (Version 1)
Quarter: 2015Q4

REPORT INFORMATION
  Report Type: Report from Study
  Country: ZA (occurrence: ZA)
  Receive Date: 20151225
  Receipt Date: 20151225
  Transmission Date: 20160305
  Serious: Yes (Death)
  Sender: FDA-Public Use
  Company Number: ZA-AMGEN-ZAFSL2015136916

PATIENT
  Sex: Female

DRUGS (1)
  1. ARANESP [Suspect]
     Active Substance: DARBEPOETIN ALFA
     Indication: PRODUCT USED FOR UNKNOWN INDICATION
     Dosage: 40 UNK, QWK
     Route: 058
     Dates: start: 20130401

REACTIONS (1)
  - Death [Fatal]
